FAERS Safety Report 6190495-8 (Version None)
Quarter: 2009Q2

REPORT INFORMATION
  Report Type: 
  Country: None (occurrence: None)
  Receive Date: 20090513
  Receipt Date: 20090513
  Transmission Date: 20091009
  Serious: No
  Sender: FDA-Public Use
  Company Number: None

PATIENT
  Age: 41 Year
  Sex: Female
  Weight: 56.6996 kg

DRUGS (2)
  1. BUPROPION HCL [Suspect]
     Indication: DEPRESSION
     Dosage: 300MG ONCE PER DAY PO
     Route: 048
     Dates: start: 20090420, end: 20090512
  2. BUPROPION HCL [Suspect]
     Indication: FATIGUE
     Dosage: 300MG ONCE PER DAY PO
     Route: 048
     Dates: start: 20090420, end: 20090512

REACTIONS (3)
  - DEPRESSION [None]
  - DISEASE RECURRENCE [None]
  - DRUG INEFFECTIVE [None]
